FAERS Safety Report 14715175 (Version 1)
Quarter: 2018Q2

REPORT INFORMATION
  Report Type: Spontaneous
  Country: US (occurrence: US)
  Receive Date: 20180404
  Receipt Date: 20180404
  Transmission Date: 20180711
  Serious: No
  Sender: FDA-Public Use
  Company Number: US-BAYER-2018-057562

PATIENT
  Sex: Female

DRUGS (2)
  1. LAXATIVE [Concomitant]
     Active Substance: UNSPECIFIED INGREDIENT
  2. MIRALAX [Suspect]
     Active Substance: POLYETHYLENE GLYCOL 3350
     Indication: GASTROINTESTINAL DISORDER
     Dosage: UNK (5 DOSES ONE TIME ONLY DOSE)
     Route: 048
     Dates: start: 20180320

REACTIONS (5)
  - Wrong technique in product usage process [Unknown]
  - Abnormal faeces [Unknown]
  - Incorrect dose administered [Unknown]
  - Product prescribing issue [Unknown]
  - Frequent bowel movements [Unknown]

NARRATIVE: CASE EVENT DATE: 20180320
